FAERS Safety Report 5088964-7 (Version None)
Quarter: 2006Q3

REPORT INFORMATION
  Report Type: 
  Country: None (occurrence: None)
  Receive Date: 20060824
  Receipt Date: 20060824
  Transmission Date: 20061208
  Serious: Yes (Hospitalization)
  Sender: FDA-Public Use
  Company Number: None

PATIENT
  Age: 18 Year
  Sex: Female
  Weight: 41.7309 kg

DRUGS (1)
  1. UNISOM [Suspect]
     Indication: OVERDOSE
     Dosage: 500MG ALL AT ONCE PO
     Route: 048
     Dates: start: 20060818, end: 20060818

REACTIONS (8)
  - AMNESIA [None]
  - APHASIA [None]
  - CONVULSION [None]
  - EAR HAEMORRHAGE [None]
  - EPISTAXIS [None]
  - INCORRECT DOSE ADMINISTERED [None]
  - INTENTIONAL DRUG MISUSE [None]
  - LOSS OF CONSCIOUSNESS [None]
